FAERS Safety Report 8492104-1 (Version None)
Quarter: 2012Q3

REPORT INFORMATION
  Report Type: 
  Country: None (occurrence: None)
  Receive Date: 20120706
  Receipt Date: 20120703
  Transmission Date: 20120928
  Serious: Yes (Other)
  Sender: FDA-Public Use
  Company Number: US-PFIZER INC-2012095002

PATIENT
  Age: 54 Year
  Sex: Male

DRUGS (4)
  1. LIPITOR [Suspect]
     Indication: BLOOD CHOLESTEROL INCREASED
     Dosage: UNK
     Dates: start: 19980101
  2. LOPID [Suspect]
     Indication: BLOOD CHOLESTEROL INCREASED
     Dosage: UNK
  3. DILANTIN [Suspect]
     Indication: CONVULSION
     Dosage: UNK
  4. PHENYTOIN [Suspect]
     Indication: CONVULSION
     Dosage: UNK
     Dates: start: 19980101

REACTIONS (6)
  - CYST [None]
  - CARDIAC DISORDER [None]
  - WEIGHT DECREASED [None]
  - MYOCARDIAL INFARCTION [None]
  - CONVULSION [None]
  - BLOOD CHOLESTEROL INCREASED [None]
